FAERS Safety Report 8517247-5 (Version None)
Quarter: 2012Q3

REPORT INFORMATION
  Report Type: 
  Country: None (occurrence: None)
  Receive Date: 20120718
  Receipt Date: 20120705
  Transmission Date: 20120928
  Serious: Yes (Other)
  Sender: FDA-Public Use
  Company Number: CN-ASTRAZENECA-2012SE49013

PATIENT
  Age: 17194 Day
  Sex: Female
  Weight: 60 kg

DRUGS (2)
  1. FENTANYL CITRATE [Suspect]
     Indication: ANALGESIC THERAPY
     Route: 042
     Dates: start: 20090128, end: 20090128
  2. PROPOFOL [Suspect]
     Indication: GENERAL ANAESTHESIA
     Route: 042
     Dates: start: 20090128, end: 20090128

REACTIONS (4)
  - CYANOSIS [None]
  - HEART RATE DECREASED [None]
  - CONFUSIONAL STATE [None]
  - BLOOD PRESSURE DECREASED [None]
